FAERS Safety Report 9525671 (Version 2)
Quarter: 2013Q3

REPORT INFORMATION
  Report Type: Spontaneous
  Country: DE (occurrence: DE)
  Receive Date: 20130916
  Receipt Date: 20130916
  Transmission Date: 20140515
  Serious: Yes (Death, Hospitalization, Other)
  Sender: FDA-Public Use
  Company Number: DE-INCYTE CORPORATION-2013IN001918

PATIENT
  Age: 66 Year
  Sex: Female

DRUGS (7)
  1. JAKAVI [Suspect]
     Indication: MYELOFIBROSIS
     Dosage: 10 MG, BID
     Route: 065
     Dates: start: 2012
  2. JAKAVI [Suspect]
     Dosage: 10 MG, BID
     Route: 065
     Dates: start: 20130104
  3. JAKAVI [Suspect]
     Dosage: 10 MG, BID
     Route: 065
     Dates: start: 20130110, end: 20130602
  4. COTRIM FORTE [Concomitant]
  5. PANTOPRAZOLE [Concomitant]
  6. BISOPROLOL [Concomitant]
  7. LITALIR [Concomitant]

REACTIONS (3)
  - Cerebral haemorrhage [Fatal]
  - Haemorrhage [Unknown]
  - Platelet count decreased [Unknown]
